FAERS Safety Report 4176160 (Version 10)
Quarter: 2013Q2

REPORT INFORMATION
  Report Type: Spontaneous
  Country: US (occurrence: US)
  Receive Date: 20040726
  Receipt Date: 20130518
  Transmission Date: 20140414
  Serious: Yes (Other)
  Sender: FDA-Public Use
  Company Number: US-ROCHE-349600

PATIENT
  Age: 17 Year
  Sex: Female
  Weight: 68 kg

DRUGS (7)
  1. ACCUTANE [Suspect]
     Indication: ACNE
     Route: 048
     Dates: start: 19951211, end: 19960118
  2. ACCUTANE [Suspect]
     Indication: SKIN PAPILLOMA
     Dosage: 20MG QAM AND 40MG QHS
     Route: 048
     Dates: start: 19960119, end: 199605
  3. ACCUTANE [Suspect]
     Route: 048
     Dates: start: 199802, end: 199807
  4. ORTHO TRI-CYCLEN [Concomitant]
     Indication: CONTRACEPTION
     Route: 048
  5. TAGAMET HB [Concomitant]
     Dosage: 400MG QAM AND 800MG QHS.
     Route: 065
  6. MINOCIN [Concomitant]
  7. SALICYLIC ACID [Concomitant]
     Dosage: WASHES
     Route: 065

REACTIONS (17)
  - Inflammatory bowel disease [Not Recovered/Not Resolved]
  - Depression [Unknown]
  - Colitis ulcerative [Recovering/Resolving]
  - Anxiety [Not Recovered/Not Resolved]
  - Haemorrhoids [Recovering/Resolving]
  - Diarrhoea [Unknown]
  - Weight decreased [Unknown]
  - Abdominal pain [Unknown]
  - Acne [Unknown]
  - Dry skin [Recovered/Resolved]
  - Nausea [Unknown]
  - Vomiting [Unknown]
  - Vision blurred [Unknown]
  - Conjunctivitis [Recovering/Resolving]
  - Insomnia [Unknown]
  - Panic attack [Not Recovered/Not Resolved]
  - Ulcerative keratitis [Recovering/Resolving]
